FAERS Safety Report 7077795-4 (Version None)
Quarter: 2010Q4

REPORT INFORMATION
  Report Type: 
  Country: None (occurrence: None)
  Receive Date: 20101101
  Receipt Date: 20101019
  Transmission Date: 20110411
  Serious: Yes (Disabling, Other)
  Sender: FDA-Public Use
  Company Number: PHHY2010CL70112

PATIENT
  Age: 73 Year
  Sex: Female

DRUGS (1)
  1. TAREG D [Suspect]
     Indication: HYPERTENSION
     Dosage: 1 TABLET DAILY
     Route: 048

REACTIONS (1)
  - PNEUMONIA [None]
